FAERS Safety Report 25484052 (Version 1)
Quarter: 2025Q2

REPORT INFORMATION
  Report Type: Spontaneous
  Country: US (occurrence: US)
  Receive Date: 20250626
  Receipt Date: 20250626
  Transmission Date: 20250717
  Serious: Yes (Other)
  Sender: BAYER HEALTHCARE LLC
  Company Number: US-BAYER-2025A084745

PATIENT
  Age: 56 Year
  Sex: Male

DRUGS (1)
  1. AFRIN SEVERE CONGESTION [Suspect]
     Active Substance: OXYMETAZOLINE HYDROCHLORIDE
     Indication: Nasal congestion
     Dosage: 2 SPRAYS IN EACH NOSTRIL
     Route: 045
     Dates: start: 202501

REACTIONS (4)
  - Drug dependence [Unknown]
  - Product use issue [Unknown]
  - Increased dose administered [Unknown]
  - Dyspnoea [Unknown]

NARRATIVE: CASE EVENT DATE: 20250101
